FAERS Safety Report 15617569 (Version 2)
Quarter: 2025Q4

REPORT INFORMATION
  Report Type: Report from Study
  Country: US (occurrence: US)
  Receive Date: 20181114
  Receipt Date: 20251230
  Transmission Date: 20260119
  Serious: No
  Sender: NOVARTIS
  Company Number: PHEH2018US047675

PATIENT
  Sex: Female

DRUGS (2)
  1. COSENTYX [Suspect]
     Active Substance: SECUKINUMAB
     Indication: Psoriasis
     Dosage: 300 OT, Q4W
     Route: 065
     Dates: start: 20150424
  2. VITAMIN D3 [Concomitant]
     Active Substance: CHOLECALCIFEROL
     Indication: Product used for unknown indication
     Dosage: UNK
     Route: 065

REACTIONS (1)
  - Abscess oral [Unknown]

NARRATIVE: CASE EVENT DATE: 20180501
